FAERS Safety Report 5098900-5 (Version None)
Quarter: 2006Q3

REPORT INFORMATION
  Report Type: 
  Country: None (occurrence: None)
  Receive Date: 20060907
  Receipt Date: 20060328
  Transmission Date: 20061208
  Serious: Yes (Life-Threatening, Hospitalization, Other)
  Sender: FDA-Public Use
  Company Number: PHBS2006VE04630

PATIENT
  Age: 7 Year
  Sex: Male

DRUGS (4)
  1. CATAFLAM [Suspect]
     Indication: PYREXIA
     Dosage: 1 DF, ONCE/SINGLE
     Dates: start: 20060325, end: 20060325
  2. ACETAMINOPHEN [Concomitant]
  3. ACYCLOVIR [Concomitant]
  4. BENADRYL [Concomitant]

REACTIONS (9)
  - COAGULOPATHY [None]
  - DYSPNOEA [None]
  - ENCEPHALITIS [None]
  - EYELID OEDEMA [None]
  - PNEUMONITIS [None]
  - SELF-MEDICATION [None]
  - THROMBOCYTOPENIA [None]
  - URTICARIA [None]
  - WHITE BLOOD CELL COUNT INCREASED [None]
